FAERS Safety Report 13674639 (Version 2)
Quarter: 2017Q4

REPORT INFORMATION
  Report Type: Spontaneous
  Country: JP (occurrence: JP)
  Receive Date: 20170621
  Receipt Date: 20171004
  Transmission Date: 20180320
  Serious: Yes (Death)
  Sender: FDA-Public Use
  Company Number: JP-SA-2017SA111394

PATIENT
  Age: 73 Year
  Sex: Female

DRUGS (2)
  1. LANTUS XR [Suspect]
     Active Substance: INSULIN GLARGINE
     Dosage: DOSE:7 UNIT(S)
     Route: 058
     Dates: start: 2016
  2. SOLOSTAR [Suspect]
     Active Substance: DEVICE
     Dates: start: 2016

REACTIONS (1)
  - Cardiac disorder [Fatal]

NARRATIVE: CASE EVENT DATE: 20170430
